FAERS Safety Report 15969785 (Version 5)
Quarter: 2019Q3

REPORT INFORMATION
  Report Type: Spontaneous
  Country: US (occurrence: US)
  Receive Date: 20190215
  Receipt Date: 20190731
  Transmission Date: 20191004
  Serious: Yes (Hospitalization, Other)
  Sender: FDA-Public Use
  Company Number: US-ASTRAZENECA-2018SF64716

PATIENT
  Age: 752 Month
  Sex: Female

DRUGS (43)
  1. PRILOSEC [Suspect]
     Active Substance: OMEPRAZOLE MAGNESIUM
     Route: 048
  2. PREVACID [Suspect]
     Active Substance: LANSOPRAZOLE
     Route: 065
  3. LEVALBUTEROL. [Concomitant]
     Active Substance: LEVALBUTEROL
  4. FLUTICASONE. [Concomitant]
     Active Substance: FLUTICASONE
  5. SEROQUEL [Concomitant]
     Active Substance: QUETIAPINE FUMARATE
  6. IBUPROFEN. [Concomitant]
     Active Substance: IBUPROFEN
  7. MIDODRINE [Concomitant]
     Active Substance: MIDODRINE
  8. NASONEX [Concomitant]
     Active Substance: MOMETASONE FUROATE
  9. FUROSEMIDE. [Concomitant]
     Active Substance: FUROSEMIDE
  10. NEXIUM [Suspect]
     Active Substance: ESOMEPRAZOLE MAGNESIUM
     Indication: GASTROOESOPHAGEAL REFLUX DISEASE
     Route: 048
     Dates: start: 201411, end: 201810
  11. ZOLPIDEM TARTRATE. [Concomitant]
     Active Substance: ZOLPIDEM TARTRATE
  12. CYANOCOBALAMIN. [Concomitant]
     Active Substance: CYANOCOBALAMIN
  13. NEXIUM [Suspect]
     Active Substance: ESOMEPRAZOLE MAGNESIUM
     Indication: GASTROOESOPHAGEAL REFLUX DISEASE
     Route: 048
     Dates: start: 20040101, end: 20081231
  14. NITROFURANTOIN. [Concomitant]
     Active Substance: NITROFURANTOIN
  15. ZANTAC [Concomitant]
     Active Substance: RANITIDINE HYDROCHLORIDE
  16. PRILOSEC OTC [Suspect]
     Active Substance: OMEPRAZOLE MAGNESIUM
     Route: 048
  17. ALPRAZOLAM. [Concomitant]
     Active Substance: ALPRAZOLAM
  18. TRAMADOL. [Concomitant]
     Active Substance: TRAMADOL
  19. LORAZEPAM. [Concomitant]
     Active Substance: LORAZEPAM
  20. LIDODERM [Concomitant]
     Active Substance: LIDOCAINE
  21. NEXIUM 24HR [Suspect]
     Active Substance: ESOMEPRAZOLE MAGNESIUM
     Route: 048
  22. AMOXICILLIN. [Concomitant]
     Active Substance: AMOXICILLIN
  23. VITAMIN D2 [Concomitant]
     Active Substance: ERGOCALCIFEROL
     Dates: start: 2018
  24. ATORVASTATIN [Concomitant]
     Active Substance: ATORVASTATIN
  25. CELECOXIB. [Concomitant]
     Active Substance: CELECOXIB
  26. HYDROXYZINE [Concomitant]
     Active Substance: HYDROXYZINE HYDROCHLORIDE
  27. PREVACID 24 HR [Suspect]
     Active Substance: LANSOPRAZOLE
     Route: 065
  28. CITALOPRAM [Concomitant]
     Active Substance: CITALOPRAM HYDROBROMIDE
  29. POTASSIUM CHLORIDE. [Concomitant]
     Active Substance: POTASSIUM CHLORIDE
  30. TIZANIDINE. [Concomitant]
     Active Substance: TIZANIDINE
  31. PEPCID [Concomitant]
     Active Substance: FAMOTIDINE
  32. PROTONIX [Suspect]
     Active Substance: PANTOPRAZOLE SODIUM
     Route: 065
     Dates: start: 20000220, end: 20040101
  33. ADVAIR HFA [Concomitant]
     Active Substance: FLUTICASONE PROPIONATE\SALMETEROL XINAFOATE
  34. ALBUTEROL. [Concomitant]
     Active Substance: ALBUTEROL
  35. TOPIRAMATE. [Concomitant]
     Active Substance: TOPIRAMATE
  36. CLONAZEPAM. [Concomitant]
     Active Substance: CLONAZEPAM
  37. LIPITOR [Concomitant]
     Active Substance: ATORVASTATIN CALCIUM
  38. NEXIUM [Suspect]
     Active Substance: ESOMEPRAZOLE MAGNESIUM
     Indication: GASTROOESOPHAGEAL REFLUX DISEASE
     Route: 048
  39. PRILOSEC [Suspect]
     Active Substance: OMEPRAZOLE MAGNESIUM
     Route: 048
  40. PREVACID [Suspect]
     Active Substance: LANSOPRAZOLE
     Route: 065
  41. MIDODRINE [Concomitant]
     Active Substance: MIDODRINE
  42. SERTRALINE [Concomitant]
     Active Substance: SERTRALINE HYDROCHLORIDE
  43. FLUOXETINE [Concomitant]
     Active Substance: FLUOXETINE HYDROCHLORIDE

REACTIONS (2)
  - Renal injury [Unknown]
  - Chronic kidney disease [Not Recovered/Not Resolved]

NARRATIVE: CASE EVENT DATE: 201606
